FAERS Safety Report 12828848 (Version 1)
Quarter: 2016Q4

REPORT INFORMATION
  Report Type: Spontaneous
  Country: US (occurrence: US)
  Receive Date: 20161007
  Receipt Date: 20161007
  Transmission Date: 20170207
  Serious: Yes (Other)
  Sender: FDA-Public Use
  Company Number: US-SA-2015SA168452

PATIENT
  Age: 49 Year
  Sex: Male

DRUGS (16)
  1. ASPIRIN. [Concomitant]
     Active Substance: ASPIRIN
  2. KRILL OIL [Concomitant]
     Active Substance: DIETARY SUPPLEMENT
  3. ZORVOLEX [Concomitant]
     Active Substance: DICLOFENAC
     Dates: start: 20150212, end: 20150904
  4. SCOPOLAMINE [Concomitant]
     Active Substance: SCOPOLAMINE
     Dates: start: 20150520, end: 20150904
  5. REBIF [Concomitant]
     Active Substance: INTERFERON BETA-1A
  6. PRAVASTATIN SODIUM. [Concomitant]
     Active Substance: PRAVASTATIN SODIUM
  7. AMFETAMINE [Concomitant]
     Active Substance: AMPHETAMINE
  8. COQ10 [Concomitant]
     Active Substance: UBIDECARENONE
  9. DIAZEPAM. [Concomitant]
     Active Substance: DIAZEPAM
  10. VITAMIN D3 [Concomitant]
     Active Substance: CHOLECALCIFEROL
  11. ZOFRAN [Concomitant]
     Active Substance: ONDANSETRON HYDROCHLORIDE
  12. VITAMIN B COMPLEX [Concomitant]
     Active Substance: CYANOCOBALAMIN\DEXPANTHENOL\NIACINAMIDE\PYRIDOXINE HYDROCHLORIDE\RIBOFLAVIN 5^-PHOSPHATE SODIUM\THIAMINE HYDROCHLORIDE\VITAMIN B COMPLEX
  13. AUBAGIO [Suspect]
     Active Substance: TERIFLUNOMIDE
     Indication: MULTIPLE SCLEROSIS
     Route: 048
  14. LIPOFEN [Concomitant]
     Active Substance: FENOFIBRATE
  15. PREDNISONE. [Concomitant]
     Active Substance: PREDNISONE
     Dates: start: 20150520, end: 20150904
  16. GILENYA [Concomitant]
     Active Substance: FINGOLIMOD HYDROCHLORIDE

REACTIONS (9)
  - Multiple sclerosis relapse [Unknown]
  - Fall [Unknown]
  - Back pain [Unknown]
  - Dizziness [Unknown]
  - Muscle spasms [Unknown]
  - Depression [Unknown]
  - Nausea [Unknown]
  - Decreased interest [Unknown]
  - Diarrhoea [Unknown]

NARRATIVE: CASE EVENT DATE: 2015
